FAERS Safety Report 8226090-6 (Version None)
Quarter: 2012Q1

REPORT INFORMATION
  Report Type: 
  Country: None (occurrence: None)
  Receive Date: 20120321
  Receipt Date: 20120315
  Transmission Date: 20120608
  Serious: Yes (Other)
  Sender: FDA-Public Use
  Company Number: US-PFIZER INC-2012068906

PATIENT
  Sex: Female
  Weight: 77.098 kg

DRUGS (7)
  1. NEURONTIN [Suspect]
     Indication: PAIN
  2. LYRICA [Suspect]
     Indication: NEUROPATHY PERIPHERAL
     Dosage: TWO 50 MG, 3X/DAY
     Route: 048
     Dates: end: 20120301
  3. SYNTHROID [Concomitant]
     Indication: THYROID DISORDER
     Dosage: 0.125 MG, 1X/DAY
  4. NEURONTIN [Suspect]
     Indication: NEUROPATHY PERIPHERAL
     Dosage: UNK
     Dates: start: 20020101
  5. LYRICA [Suspect]
     Indication: BURNING SENSATION
  6. NEURONTIN [Suspect]
     Indication: BURNING SENSATION
  7. LYRICA [Suspect]
     Indication: PAIN
     Dosage: 100 MG, 3X/DAY
     Route: 048
     Dates: start: 20120301

REACTIONS (5)
  - DRUG INEFFECTIVE [None]
  - PAIN [None]
  - INSOMNIA [None]
  - BURNING SENSATION [None]
  - PARAESTHESIA [None]
